FAERS Safety Report 8106253-0 (Version None)
Quarter: 2012Q1

REPORT INFORMATION
  Report Type: 
  Country: None (occurrence: None)
  Receive Date: 20120130
  Receipt Date: 20120116
  Transmission Date: 20120608
  Serious: Yes (Hospitalization, Other)
  Sender: FDA-Public Use
  Company Number: DSU-2011-09053

PATIENT
  Age: 56 Year
  Sex: Male
  Weight: 97.5234 kg

DRUGS (6)
  1. BENICAR [Suspect]
     Indication: HYPERTENSION
     Dosage: PER ORAL; 20 MG (20 MG, QD), PER ORAL
     Route: 048
     Dates: end: 20100623
  2. BENICAR [Suspect]
     Indication: HYPERTENSION
     Dosage: PER ORAL; 20 MG (20 MG, QD), PER ORAL
     Route: 048
     Dates: start: 20111018, end: 20111104
  3. MULTIVITAMIN [Concomitant]
  4. DICYCLOMINE (DICYCLOVERINE) (DICYCLOVERINE) [Concomitant]
  5. LOVASTATIN [Suspect]
  6. BENICAR HCT [Suspect]
     Indication: HYPERTENSION
     Dosage: 20/12.5MG (QD), PER ORAL
     Route: 048
     Dates: start: 20100624, end: 20111018

REACTIONS (14)
  - INSOMNIA [None]
  - DYSGRAPHIA [None]
  - INFLUENZA LIKE ILLNESS [None]
  - THROMBOSIS [None]
  - NAUSEA [None]
  - ABASIA [None]
  - READING DISORDER [None]
  - COUGH [None]
  - VOMITING [None]
  - WEIGHT DECREASED [None]
  - ANGIOEDEMA [None]
  - PULMONARY THROMBOSIS [None]
  - APHASIA [None]
  - OEDEMA PERIPHERAL [None]
